FAERS Safety Report 16373551 (Version 1)
Quarter: 2019Q2

REPORT INFORMATION
  Report Type: Spontaneous
  Country: ES (occurrence: ES)
  Receive Date: 20190530
  Receipt Date: 20190530
  Transmission Date: 20190711
  Serious: Yes (Other)
  Sender: FDA-Public Use
  Company Number: ES-ALEXION PHARMACEUTICALS INC.-A201907996

PATIENT
  Age: 52 Year
  Sex: Male

DRUGS (7)
  1. SOLIRIS [Suspect]
     Active Substance: ECULIZUMAB
     Dosage: UNK UNK, Q2W
     Route: 065
  2. SOLIRIS [Suspect]
     Active Substance: ECULIZUMAB
     Dosage: REINDUCTION DOSE
     Route: 065
  3. SOLIRIS [Suspect]
     Active Substance: ECULIZUMAB
     Dosage: UNK, EVERY 16 DAYS
     Route: 065
     Dates: end: 2014
  4. SOLIRIS [Suspect]
     Active Substance: ECULIZUMAB
     Dosage: UNK, Q2W
     Route: 065
  5. SOLIRIS [Suspect]
     Active Substance: ECULIZUMAB
     Indication: PAROXYSMAL NOCTURNAL HAEMOGLOBINURIA
     Dosage: UNK
     Route: 065
     Dates: start: 2009
  6. SOLIRIS [Suspect]
     Active Substance: ECULIZUMAB
     Dosage: UNK, Q2W
     Route: 065
  7. SOLIRIS [Suspect]
     Active Substance: ECULIZUMAB
     Dosage: UNK, Q12D
     Route: 065

REACTIONS (15)
  - Portal hypertension [Unknown]
  - Haemoglobin decreased [Unknown]
  - Hepatosplenomegaly [Unknown]
  - Gastrointestinal angiodysplasia [Unknown]
  - Liver disorder [Unknown]
  - Iron overload [Unknown]
  - Pancytopenia [Unknown]
  - Haemolysis [Unknown]
  - Hepatic cirrhosis [Unknown]
  - Bone marrow failure [Unknown]
  - Aplasia [Unknown]
  - Blood lactate dehydrogenase increased [Unknown]
  - Blood product transfusion dependent [Unknown]
  - Alloimmunisation [Unknown]
  - Platelet count decreased [Unknown]

NARRATIVE: CASE EVENT DATE: 201404
